FAERS Safety Report 7522471-4 (Version None)
Quarter: 2011Q2

REPORT INFORMATION
  Report Type: 
  Country: None (occurrence: None)
  Receive Date: 20110525
  Receipt Date: 20110516
  Transmission Date: 20111010
  Serious: Yes (Hospitalization)
  Sender: FDA-Public Use
  Company Number: CIP11001235

PATIENT
  Sex: Female

DRUGS (1)
  1. NITROFURANTOIN [Suspect]
     Dosage: ORAL
     Route: 048

REACTIONS (2)
  - SHOCK HYPOGLYCAEMIC [None]
  - HYPOGLYCAEMIA [None]
